FAERS Safety Report 21137722 (Version 1)
Quarter: 2022Q3

REPORT INFORMATION
  Report Type: Spontaneous
  Country: US (occurrence: None)
  Receive Date: 20220727
  Receipt Date: 20220727
  Transmission Date: 20221027
  Serious: No
  Sender: FDA-Public Use
  Company Number: None

PATIENT
  Sex: Female

DRUGS (1)
  1. PEMAZYRE [Suspect]
     Active Substance: PEMIGATINIB
     Dosage: OTHER FREQUENCY : QD FOR 14 DAYS ON;?
     Route: 048
     Dates: start: 20220706

REACTIONS (4)
  - Blood phosphorus increased [None]
  - Weight decreased [None]
  - Taste disorder [None]
  - Hypopnoea [None]
